FAERS Safety Report 11857536 (Version 1)
Quarter: 2015Q4

REPORT INFORMATION
  Report Type: Other
  Country: None (occurrence: US)
  Receive Date: 20151221
  Receipt Date: 20151221
  Transmission Date: 20160305
  Serious: No
  Sender: FDA-Public Use
  Company Number: US-BRECKENRIDGE PHARMACEUTICAL, INC.-1045740

PATIENT
  Age: 91 Year
  Sex: Female
  Weight: 58.18 kg

DRUGS (1)
  1. MELATONIN [Suspect]
     Active Substance: MELATONIN
     Indication: INSOMNIA
     Route: 048
     Dates: start: 20151209, end: 20151215

REACTIONS (2)
  - Pain [Recovered/Resolved]
  - Eagle Barrett syndrome [Recovered/Resolved]

NARRATIVE: CASE EVENT DATE: 20151209
